FAERS Safety Report 19047959 (Version 2)
Quarter: 2021Q1

REPORT INFORMATION
  Report Type: Report from Study
  Country: None (occurrence: US)
  Receive Date: 20210324
  Receipt Date: 20210327
  Transmission Date: 20210420
  Serious: No
  Sender: FDA-Public Use
  Company Number: US-ABBVIE-21K-163-3822969-00

PATIENT
  Age: 51 Year
  Sex: Female
  Weight: 52.21 kg

DRUGS (1)
  1. HUMIRA [Suspect]
     Active Substance: ADALIMUMAB
     Indication: CROHN^S DISEASE
     Dosage: CITRATE FREE
     Route: 058
     Dates: start: 201909

REACTIONS (6)
  - Inflammation [Not Recovered/Not Resolved]
  - Joint swelling [Recovered/Resolved]
  - Antibody test positive [Not Recovered/Not Resolved]
  - Red blood cell sedimentation rate increased [Not Recovered/Not Resolved]
  - Arthralgia [Not Recovered/Not Resolved]
  - Peripheral swelling [Recovered/Resolved]

NARRATIVE: CASE EVENT DATE: 202012
